FAERS Safety Report 6445466-0 (Version None)
Quarter: 2009Q4

REPORT INFORMATION
  Report Type: 
  Country: None (occurrence: None)
  Receive Date: 20091118
  Receipt Date: 20091103
  Transmission Date: 20100525
  Serious: Yes (Hospitalization, Other)
  Sender: FDA-Public Use
  Company Number: US-BRISTOL-MYERS SQUIBB COMPANY-13487012

PATIENT
  Age: 14 Year
  Sex: Female
  Weight: 28 kg

DRUGS (13)
  1. ATAZANAVIR [Suspect]
     Indication: HIV INFECTION
     Dosage: THERAPY HELD ON 22-JUL-06, RESTART 25-JUL-06 AT 400 MG, HELD 08-AUG-06, DISCONTINUED ON 15-AUG-2006.
     Route: 048
     Dates: start: 20051005, end: 20060811
  2. STAVUDINE [Suspect]
     Indication: HIV INFECTION
     Dosage: THERAPY TEMPORARILY HELD ON 08-AUG-2006 AND DISCONTINUED ON 15-AUG-2006
     Route: 048
     Dates: start: 20051005, end: 20060818
  3. LAMIVUDINE [Suspect]
     Indication: HIV INFECTION
     Dosage: THERAPY TEMPORARILY HELD ON 08-AUG-2006 AND DISCONTINUED ON 15-AUG-2006.
     Route: 048
     Dates: start: 20051005, end: 20060818
  4. LASIX [Concomitant]
  5. ALDACTONE [Concomitant]
  6. MULTI-VITAMIN [Concomitant]
     Dates: start: 20050501
  7. DIGOXIN [Concomitant]
     Dates: start: 20060808
  8. SOLU-CORTEF [Concomitant]
     Dates: start: 20060814, end: 20060818
  9. SLOW-K [Concomitant]
     Dates: start: 20060814
  10. TAGAMET [Concomitant]
     Dates: start: 20060814
  11. AUGMENTIN [Concomitant]
     Dates: start: 20060814
  12. BACTRIM [Concomitant]
     Dates: start: 20050801
  13. LOSEC [Concomitant]
     Dates: start: 20060401

REACTIONS (8)
  - ALANINE AMINOTRANSFERASE INCREASED [None]
  - ASPARTATE AMINOTRANSFERASE INCREASED [None]
  - BILIRUBIN CONJUGATED INCREASED [None]
  - CARDIAC FAILURE [None]
  - ELECTROCARDIOGRAM QT PROLONGED [None]
  - HYPERBILIRUBINAEMIA [None]
  - LUNG DISORDER [None]
  - PNEUMONIA [None]
